FAERS Safety Report 6858868-5 (Version None)
Quarter: 2010Q3

REPORT INFORMATION
  Report Type: 
  Country: None (occurrence: None)
  Receive Date: 20100719
  Receipt Date: 20080618
  Transmission Date: 20110219
  Serious: Yes (Other)
  Sender: FDA-Public Use
  Company Number: US-PFIZER INC-2008015585

PATIENT
  Sex: Male
  Weight: 68 kg

DRUGS (4)
  1. CHANTIX [Suspect]
     Indication: TOBACCO ABUSE
     Route: 048
     Dates: start: 20070801, end: 20070901
  2. SPIRIVA [Concomitant]
  3. LIDEX [Concomitant]
  4. ATARAX [Concomitant]

REACTIONS (4)
  - ERYTHEMA [None]
  - MIDDLE INSOMNIA [None]
  - PRURITUS [None]
  - UNEVALUABLE EVENT [None]
